FAERS Safety Report 17840693 (Version 1)
Quarter: 2020Q2

REPORT INFORMATION
  Report Type: Spontaneous
  Country: IL (occurrence: IL)
  Receive Date: 20200529
  Receipt Date: 20200529
  Transmission Date: 20200714
  Serious: Yes (Hospitalization)
  Sender: FDA-Public Use
  Company Number: IL-ROCHE-2608651

PATIENT
  Age: 75 Year
  Sex: Male
  Weight: 71 kg

DRUGS (7)
  1. IBRUTINIB [Suspect]
     Active Substance: IBRUTINIB
     Indication: B-CELL LYMPHOMA
     Dosage: THERAPY DURATION:  339 DAYS
     Route: 048
     Dates: start: 20181225, end: 20191129
  2. ZOVIRAX [Concomitant]
     Active Substance: ACYCLOVIR
  3. MIRTAZAPINE. [Concomitant]
     Active Substance: MIRTAZAPINE
  4. RITUXIMAB. [Suspect]
     Active Substance: RITUXIMAB
     Indication: B-CELL LYMPHOMA
     Route: 042
     Dates: start: 20181225
  5. ALLORIL [Concomitant]
     Active Substance: ALLOPURINOL
  6. SULPHAMETHOXAZOLE [Concomitant]
     Active Substance: SULFAMETHOXAZOLE
     Route: 065
  7. TRIMETHOPRIM. [Concomitant]
     Active Substance: TRIMETHOPRIM
     Route: 065

REACTIONS (1)
  - Prostate cancer [Recovered/Resolved]

NARRATIVE: CASE EVENT DATE: 20200413
